FAERS Safety Report 6638813-8 (Version None)
Quarter: 2010Q1

REPORT INFORMATION
  Report Type: 
  Country: None (occurrence: None)
  Receive Date: 20100317
  Receipt Date: 20100309
  Transmission Date: 20100710
  Serious: Yes (Other)
  Sender: FDA-Public Use
  Company Number: JP-SANOFI-AVENTIS-2010SA013588

PATIENT
  Age: 62 Year
  Sex: Male

DRUGS (8)
  1. OXALIPLATIN [Suspect]
     Indication: LARGE INTESTINE CARCINOMA
     Route: 041
  2. OXALIPLATIN [Suspect]
     Route: 041
     Dates: start: 20100210, end: 20100210
  3. AVASTIN [Suspect]
     Indication: LARGE INTESTINE CARCINOMA
     Route: 041
     Dates: start: 20080827, end: 20080827
  4. AVASTIN [Suspect]
     Route: 041
     Dates: start: 20100210, end: 20100210
  5. FLUOROURACIL [Suspect]
     Indication: LARGE INTESTINE CARCINOMA
     Route: 042
  6. FLUOROURACIL [Suspect]
     Route: 042
     Dates: start: 20100201, end: 20100201
  7. CALCIUM LEVOFOLINATE [Suspect]
     Indication: LARGE INTESTINE CARCINOMA
     Route: 041
  8. CALCIUM LEVOFOLINATE [Suspect]
     Route: 041
     Dates: start: 20100210, end: 20100210

REACTIONS (2)
  - BILE DUCT STONE [None]
  - PORCELAIN GALLBLADDER [None]
